FAERS Safety Report 6912301-3 (Version None)
Quarter: 2010Q3

REPORT INFORMATION
  Report Type: 
  Country: None (occurrence: None)
  Receive Date: 20100806
  Receipt Date: 20080310
  Transmission Date: 20110219
  Serious: No
  Sender: FDA-Public Use
  Company Number: US-PFIZER INC-2008023631

PATIENT

DRUGS (2)
  1. DETROL [Suspect]
  2. ALL OTHER THERAPEUTIC PRODUCTS [Interacting]

REACTIONS (1)
  - DRUG INTERACTION [None]
